FAERS Safety Report 11785720 (Version 2)
Quarter: 2016Q2

REPORT INFORMATION
  Report Type: Spontaneous
  Country: JP (occurrence: JP)
  Receive Date: 20151130
  Receipt Date: 20160412
  Transmission Date: 20160815
  Serious: Yes (Other)
  Sender: FDA-Public Use
  Company Number: JP-SHIONOGI, INC-2015001241

PATIENT
  Age: 27 Year
  Sex: Female

DRUGS (6)
  1. ACETAMINOPHEN. [Concomitant]
     Active Substance: ACETAMINOPHEN
     Indication: SEPSIS
     Route: 065
  2. FINIBAX [Suspect]
     Active Substance: DORIPENEM MONOHYDRATE
     Indication: SEPSIS
     Dosage: 3 G, QD
     Route: 065
  3. AMPICILLIN [Concomitant]
     Active Substance: AMPICILLIN
     Indication: SEPSIS
     Route: 065
  4. FLOMOX                             /01418603/ [Concomitant]
     Indication: SEPSIS
     Route: 065
  5. CLINDAMYCIN PHOSPHATE. [Concomitant]
     Active Substance: CLINDAMYCIN PHOSPHATE
     Indication: SEPSIS
     Route: 065
  6. KAKKONTO                           /07985901/ [Concomitant]
     Indication: SEPSIS
     Route: 065

REACTIONS (3)
  - Foetal death [Recovered/Resolved]
  - Placental insufficiency [Recovered/Resolved]
  - Maternal exposure during pregnancy [Unknown]
